FAERS Safety Report 8291383-3 (Version None)
Quarter: 2012Q2

REPORT INFORMATION
  Report Type: 
  Country: None (occurrence: None)
  Receive Date: 20120417
  Receipt Date: 20120409
  Transmission Date: 20120825
  Serious: Yes (Death)
  Sender: FDA-Public Use
  Company Number: US-GLAXOSMITHKLINE-A0973895A

PATIENT
  Age: 65 Year
  Sex: Female

DRUGS (4)
  1. FLOLAN [Suspect]
     Indication: PRODUCT USED FOR UNKNOWN INDICATION
     Dosage: 49.5NGKM UNKNOWN
     Route: 042
     Dates: start: 20090904
  2. GLEEVEC [Concomitant]
  3. METOLAZONE [Concomitant]
  4. SPIRONOLACTONE [Concomitant]

REACTIONS (1)
  - DEATH [None]
